FAERS Safety Report 15857427 (Version 3)
Quarter: 2019Q1

REPORT INFORMATION
  Report Type: Spontaneous
  Country: US (occurrence: US)
  Receive Date: 20190123
  Receipt Date: 20190319
  Transmission Date: 20190417
  Serious: No
  Sender: FDA-Public Use
  Company Number: US-SHIRE-US201901603

PATIENT
  Age: 44 Year
  Sex: Female
  Weight: 120 kg

DRUGS (1)
  1. VYVANSE [Suspect]
     Active Substance: LISDEXAMFETAMINE DIMESYLATE
     Indication: ATTENTION DEFICIT/HYPERACTIVITY DISORDER
     Dosage: 60 MILLIGRAM, 1X/DAY:QD
     Route: 048
     Dates: start: 2010

REACTIONS (12)
  - Paranoia [Not Recovered/Not Resolved]
  - Drug ineffective [Unknown]
  - Poor quality product administered [Unknown]
  - Diplopia [Recovered/Resolved]
  - Inappropriate schedule of product administration [Recovered/Resolved]
  - Inability to afford medication [Unknown]
  - Product physical issue [Unknown]
  - Confusional state [Not Recovered/Not Resolved]
  - Aggression [Not Recovered/Not Resolved]
  - Underdose [Unknown]
  - Strabismus [Recovered/Resolved]
  - Frustration tolerance decreased [Not Recovered/Not Resolved]

NARRATIVE: CASE EVENT DATE: 20190111
